FAERS Safety Report 25790892 (Version 1)
Quarter: 2025Q3

REPORT INFORMATION
  Report Type: Spontaneous
  Country: EU (occurrence: EU)
  Receive Date: 20250911
  Receipt Date: 20250911
  Transmission Date: 20251021
  Serious: Yes (Other)
  Sender: Haleon PLC
  Company Number: EU-HALEON-2262090

PATIENT
  Sex: Female

DRUGS (1)
  1. ACETAMINOPHEN\CAFFEINE [Suspect]
     Active Substance: ACETAMINOPHEN\CAFFEINE
     Indication: Arthralgia

REACTIONS (2)
  - Renal failure [Unknown]
  - Dialysis [Unknown]
